FAERS Safety Report 8320572-4 (Version None)
Quarter: 2012Q2

REPORT INFORMATION
  Report Type: 
  Country: None (occurrence: None)
  Receive Date: 20120430
  Receipt Date: 20120424
  Transmission Date: 20120825
  Serious: Yes (Hospitalization, Other)
  Sender: FDA-Public Use
  Company Number: US-PFIZER INC-2012065350

PATIENT
  Sex: Female
  Weight: 55 kg

DRUGS (5)
  1. LYRICA [Suspect]
     Dosage: 300 MG, 2X/DAY
     Route: 048
  2. CLONAZEPAM [Concomitant]
     Dosage: 5 MG, HS
  3. LYRICA [Suspect]
     Indication: MIGRAINE
     Dosage: 50 MG, UNK
     Route: 048
     Dates: start: 20050501
  4. OMEPRAZOLE [Concomitant]
     Indication: ULCER
     Dosage: 20 MG, 2X/DAY
  5. FIORINAL [Concomitant]
     Dosage: UNK, TID

REACTIONS (3)
  - PNEUMONIA [None]
  - MIGRAINE [None]
  - HEADACHE [None]
